FAERS Safety Report 14331440 (Version 7)
Quarter: 2021Q3

REPORT INFORMATION
  Report Type: Report from Study
  Country: US (occurrence: US)
  Receive Date: 20171228
  Receipt Date: 20210810
  Transmission Date: 20211014
  Serious: Yes (Hospitalization, Other)
  Sender: FDA-Public Use
  Company Number: US-ROCHE-2020625

PATIENT
  Age: 79 Year
  Sex: Male
  Weight: 81.2 kg

DRUGS (49)
  1. COD LIVER OIL [Concomitant]
     Active Substance: COD LIVER OIL
     Dosage: UNKNOWN
  2. COENZYME Q?10;SODIUM CHLORIDE [Concomitant]
     Dosage: UNKNOWN
  3. METHADONE [Concomitant]
     Active Substance: METHADONE HYDROCHLORIDE
     Dosage: C?II
     Route: 048
  4. MIDODRINE [Concomitant]
     Active Substance: MIDODRINE
     Route: 048
  5. SIMETHICONE (DIMETHICONE) [Concomitant]
     Active Substance: DIMETHICONE
     Dosage: AS NEEDED
  6. OXYCONTIN [Concomitant]
     Active Substance: OXYCODONE HYDROCHLORIDE
  7. RANITIDINE HYDROCHLORIDE. [Concomitant]
     Active Substance: RANITIDINE HYDROCHLORIDE
  8. ATORVASTATIN [Concomitant]
     Active Substance: ATORVASTATIN
     Dosage: BEDTIME
     Route: 048
  9. METOPROLOLTARTRAT [Concomitant]
     Dosage: IMMEDIATE RELEASE
  10. FUROSEMIDE. [Concomitant]
     Active Substance: FUROSEMIDE
  11. NALOXEGOL [Concomitant]
     Active Substance: NALOXEGOL
  12. SENNA [Concomitant]
     Active Substance: SENNA LEAF\SENNOSIDES\SENNOSIDES A AND B
     Dosage: 2 TABLETS
     Route: 048
  13. OXYCONTIN [Concomitant]
     Active Substance: OXYCODONE HYDROCHLORIDE
  14. GAS?X [Concomitant]
     Active Substance: DIMETHICONE
  15. DOCUSATE SODIUM. [Concomitant]
     Active Substance: DOCUSATE SODIUM
     Route: 048
  16. DOCUSATE SODIUM. [Concomitant]
     Active Substance: DOCUSATE SODIUM
  17. DOCUSATE SODIUM. [Concomitant]
     Active Substance: DOCUSATE SODIUM
     Route: 048
  18. TAMSULOSIN [Concomitant]
     Active Substance: TAMSULOSIN
  19. POLYETHYLENE GLYCOL 3350. [Concomitant]
     Active Substance: POLYETHYLENE GLYCOL 3350
     Route: 048
  20. ALFUZOSIN [Concomitant]
     Active Substance: ALFUZOSIN
  21. HYDROMORPHONE [Concomitant]
     Active Substance: HYDROMORPHONE
     Dosage: 1?2 TABS
  22. MEROPENEM. [Concomitant]
     Active Substance: MEROPENEM
     Route: 042
  23. FUROSEMIDE. [Concomitant]
     Active Substance: FUROSEMIDE
  24. OXYCODONE [Concomitant]
     Active Substance: OXYCODONE
     Dosage: C?II
  25. SIMETHICONE (DIMETHICONE) [Concomitant]
     Active Substance: DIMETHICONE
     Dosage: EVERY 8 HOURS AS NEEDED
     Route: 048
  26. RANITIDINE. [Concomitant]
     Active Substance: RANITIDINE
     Dosage: 2 TABLETS AT BETIME
     Route: 048
  27. ARANESP [Concomitant]
     Active Substance: DARBEPOETIN ALFA
     Dosage: 200 MCG/ML
  28. PREGABALIN. [Concomitant]
     Active Substance: PREGABALIN
  29. FERROUS SULFATE. [Concomitant]
     Active Substance: FERROUS SULFATE
     Dosage: 65 MG ELEMENTAL IRON
  30. METOPROLOLTARTRAT [Concomitant]
  31. DIPHENHYDRAMIN [Concomitant]
     Active Substance: DIPHENHYDRAMINE
     Dosage: ONCE
  32. MIRALAX [Concomitant]
     Active Substance: POLYETHYLENE GLYCOL 3350
     Dosage: AS NEEDED?POWDER FOR RECONSTITUTION 1 DOSE
     Route: 048
  33. ASPIRIN. [Concomitant]
     Active Substance: ASPIRIN
  34. FERROUS SULFATE. [Concomitant]
     Active Substance: FERROUS SULFATE
  35. OXYBUTYNIN. [Concomitant]
     Active Substance: OXYBUTYNIN CHLORIDE
  36. CLOPIDOGREL [Concomitant]
     Active Substance: CLOPIDOGREL BISULFATE
  37. ACLOVATE [Concomitant]
     Active Substance: ALCLOMETASONE DIPROPIONATE
  38. METHADONE [Concomitant]
     Active Substance: METHADONE HYDROCHLORIDE
  39. ACETAMINOPHEN. [Concomitant]
     Active Substance: ACETAMINOPHEN
     Dosage: 3 TABLETS EVERY 8 HOURS
  40. KLOR?CON M20 [Concomitant]
     Active Substance: POTASSIUM CHLORIDE
     Route: 048
  41. CELECOXIB. [Concomitant]
     Active Substance: CELECOXIB
  42. COBIMETINIB. [Suspect]
     Active Substance: COBIMETINIB
     Indication: ROSAI-DORFMAN SYNDROME
     Route: 048
     Dates: start: 20170224
  43. COBIMETINIB. [Suspect]
     Active Substance: COBIMETINIB
     Route: 048
     Dates: start: 20170616, end: 20180719
  44. ENOXAPARIN SODIUM. [Concomitant]
     Active Substance: ENOXAPARIN SODIUM
     Route: 058
  45. PROTONIX [Concomitant]
     Active Substance: PANTOPRAZOLE SODIUM
     Dosage: 2?TABS
     Route: 048
  46. VITAMIN B COMPLEX [Concomitant]
     Active Substance: CYANOCOBALAMIN\DEXPANTHENOL\NIACINAMIDE\PYRIDOXINE HYDROCHLORIDE\RIBOFLAVIN 5^-PHOSPHATE SODIUM\THIAMINE HYDROCHLORIDE\VITAMIN B COMPLEX
  47. LIDOCAINE. [Concomitant]
     Active Substance: LIDOCAINE
     Dosage: AS NEEDED
     Route: 061
  48. OXYCODONE [Concomitant]
     Active Substance: OXYCODONE
     Dosage: TABLET 1 TO 3 EVERY 3 HOURS AS NEEDED
  49. PANTOPRAZOLE [Concomitant]
     Active Substance: PANTOPRAZOLE
     Route: 048

REACTIONS (17)
  - Pyrexia [Unknown]
  - Nausea [Unknown]
  - Infection [Unknown]
  - Systemic infection [Unknown]
  - Dyspnoea [Unknown]
  - Myocardial infarction [Unknown]
  - Constipation [Unknown]
  - Bacteraemia [Unknown]
  - Ejection fraction decreased [Unknown]
  - Urinary tract infection [Unknown]
  - Escherichia sepsis [Unknown]
  - Myelodysplastic syndrome [Unknown]
  - Myocardial ischaemia [Unknown]
  - Asthenia [Unknown]
  - Pain [Unknown]
  - Hypotension [Unknown]
  - Abdominal pain [Unknown]

NARRATIVE: CASE EVENT DATE: 20171003
